FAERS Safety Report 7393449-9 (Version None)
Quarter: 2011Q2

REPORT INFORMATION
  Report Type: 
  Country: None (occurrence: None)
  Receive Date: 20110405
  Receipt Date: 20110324
  Transmission Date: 20111010
  Serious: Yes (Other)
  Sender: FDA-Public Use
  Company Number: US-BAYER-2011-026880

PATIENT
  Age: 27 Year
  Sex: Female

DRUGS (1)
  1. MIRENA [Suspect]
     Indication: CONTRACEPTION
     Dosage: 20 MCG/24HR, CONT
     Route: 015
     Dates: start: 20091001

REACTIONS (13)
  - HOT FLUSH [None]
  - ALOPECIA [None]
  - ANXIETY [None]
  - PALPITATIONS [None]
  - SUPRAVENTRICULAR TACHYCARDIA [None]
  - VERTIGO [None]
  - NAUSEA [None]
  - ASTHENIA [None]
  - VISION BLURRED [None]
  - SINUS HEADACHE [None]
  - HEADACHE [None]
  - MOOD ALTERED [None]
  - VAGINAL DISCHARGE [None]
